FAERS Safety Report 21420889 (Version 1)
Quarter: 2022Q4

REPORT INFORMATION
  Report Type: Spontaneous
  Country: CA (occurrence: CA)
  Receive Date: 20221007
  Receipt Date: 20221007
  Transmission Date: 20230112
  Serious: Yes (Other)
  Sender: FDA-Public Use
  Company Number: CA-NEBO-PC009169

PATIENT
  Sex: Female

DRUGS (1)
  1. MONOFERRIC [Suspect]
     Active Substance: FERRIC DERISOMALTOSE
     Indication: Product used for unknown indication
     Dosage: DILUTED IN 100 ML NORMAL SALINE SET TO 25 ML/HR.
     Route: 050
     Dates: start: 20220927, end: 20220927

REACTIONS (8)
  - Slow response to stimuli [Unknown]
  - Chest discomfort [Unknown]
  - Visual impairment [Unknown]
  - Dizziness [Unknown]
  - Blood pressure increased [Recovered/Resolved]
  - Oxygen saturation decreased [Unknown]
  - Hyperhidrosis [Unknown]
  - Screaming [Unknown]

NARRATIVE: CASE EVENT DATE: 20220927
